FAERS Safety Report 17468642 (Version 2)
Quarter: 2020Q3

REPORT INFORMATION
  Report Type: Spontaneous
  Country: BR (occurrence: BR)
  Receive Date: 20200227
  Receipt Date: 20200805
  Transmission Date: 20201102
  Serious: Yes (Other)
  Sender: FDA-Public Use
  Company Number: BR-SA-2020SA033823

PATIENT

DRUGS (1)
  1. CLEXANE [Suspect]
     Active Substance: ENOXAPARIN SODIUM
     Indication: HYPERCOAGULATION
     Dosage: 40 MG, QD
     Route: 065

REACTIONS (5)
  - Haemorrhage in pregnancy [Unknown]
  - Exposure during pregnancy [Unknown]
  - Product use in unapproved indication [Unknown]
  - Premature separation of placenta [Unknown]
  - Maternal exposure during breast feeding [Unknown]

NARRATIVE: CASE EVENT DATE: 20200113
